FAERS Safety Report 9516351 (Version 1)
Quarter: 2013Q1

REPORT INFORMATION
  Report Type: Spontaneous
  Country: US (occurrence: None)
  Receive Date: 20130305
  Receipt Date: 20130305
  Transmission Date: 20140127
  Serious: Yes (Other)
  Sender: FDA-Public Use
  Company Number: 163-21880-12113749

PATIENT
  Age: 64 Year
  Sex: Female

DRUGS (2)
  1. REVLIMID [Suspect]
     Indication: PLASMA CELL MYELOMA
     Dosage: 2 IN 1 WK
     Route: 048
     Dates: start: 20121004
  2. DEXAMETHASONE [Concomitant]

REACTIONS (3)
  - Gastroenteritis viral [None]
  - Nasopharyngitis [None]
  - Diarrhoea [None]
